FAERS Safety Report 18784718 (Version 2)
Quarter: 2021Q3

REPORT INFORMATION
  Report Type: Spontaneous
  Country: ES (occurrence: ES)
  Receive Date: 20210125
  Receipt Date: 20210924
  Transmission Date: 20211014
  Serious: Yes (Other)
  Sender: FDA-Public Use
  Company Number: ES-INSMED, INC.-E2B_00000431

PATIENT
  Age: 78 Year
  Sex: Male

DRUGS (3)
  1. CEFTAZIDIME. [Suspect]
     Active Substance: CEFTAZIDIME
     Indication: PSEUDOMONAS INFECTION
     Dosage: UNK
     Route: 065
  2. LEVOFLOXACIN. [Suspect]
     Active Substance: LEVOFLOXACIN
     Indication: PSEUDOMONAS INFECTION
     Dosage: UNK (STOPPED AFTER TOXICODERMNIA REACTION)
     Route: 048
  3. LIPOSOMAL AMIKACIN [Suspect]
     Active Substance: AMIKACIN SULFATE
     Indication: PSEUDOMONAS INFECTION
     Dosage: UNK
     Route: 055

REACTIONS (2)
  - Condition aggravated [Recovered/Resolved]
  - Toxic skin eruption [Recovered/Resolved]
